FAERS Safety Report 9214234 (Version 2)
Quarter: 2013Q2

REPORT INFORMATION
  Report Type: Report from Study
  Country: US (occurrence: US)
  Receive Date: 20130405
  Receipt Date: 20130521
  Transmission Date: 20140414
  Serious: Yes (Other)
  Sender: FDA-Public Use
  Company Number: US-BAYER-2012-135297

PATIENT
  Age: 76 Year
  Sex: Female
  Weight: 66.67 kg

DRUGS (11)
  1. STIVARGA [Suspect]
     Indication: COLON CANCER
     Dosage: 160 MG, QD
     Route: 048
     Dates: start: 20121218, end: 20121226
  2. STIVARGA [Suspect]
     Indication: COLON CANCER
     Dosage: UNK
     Dates: end: 20130225
  3. STIVARGA [Suspect]
     Indication: COLON CANCER
     Dosage: 40 MG, DAILY
     Dates: end: 20130204
  4. ATENOLOL [Concomitant]
     Indication: BLOOD PRESSURE INCREASED
     Dosage: 50 MG, QD
  5. IRBESARTAN [Concomitant]
     Dosage: 300 MG, QD
  6. STOMATOLOGICALS, MOUTH PREPARATIONS [Concomitant]
     Indication: DRY MOUTH
  7. STOMATOLOGICALS, MOUTH PREPARATIONS [Concomitant]
     Indication: ORAL PAIN
  8. HYDROCHLOROTHIAZIDE [Concomitant]
     Indication: HYPERTENSION
  9. PRADAXA [Concomitant]
     Indication: TROUSSEAU^S SYNDROME
     Dosage: 150 MG, BID
  10. METFORMIN [Concomitant]
     Dosage: 1000 MG, BID
  11. NORVASC [Concomitant]
     Dosage: 10 MG, UNK
     Dates: start: 201301

REACTIONS (8)
  - Tumour marker increased [Recovering/Resolving]
  - Drug ineffective [None]
  - Oral mucosal erythema [Recovering/Resolving]
  - Oral pain [Recovering/Resolving]
  - Blood pressure increased [Recovering/Resolving]
  - Oropharyngeal pain [Recovering/Resolving]
  - Stomatitis [Recovering/Resolving]
  - Mucosal inflammation [Recovering/Resolving]
